FAERS Safety Report 4600984-2 (Version None)
Quarter: 2005Q1

REPORT INFORMATION
  Report Type: 
  Country: None (occurrence: None)
  Receive Date: 20050307
  Receipt Date: 20050307
  Transmission Date: 20050727
  Serious: Yes (Life-Threatening, Hospitalization)
  Sender: FDA-Public Use
  Company Number: None

PATIENT
  Age: 69 Year
  Sex: Male
  Weight: 83.9154 kg

DRUGS (4)
  1. CARBOPLATIN [Suspect]
     Indication: OESOPHAGEAL CARCINOMA
     Dosage: AUC = 4 IV DAY 1,22
     Route: 042
     Dates: start: 20041019, end: 20041202
  2. TAXOL [Suspect]
     Dosage: 200MG/M2 IV DAY 1,22
     Route: 042
  3. FLUOROURACIL [Suspect]
     Dosage: 225 MG/M2 CONTINUOUS DECREASED180MG/M2 IV DAY 1 - DAY 42
     Route: 042
  4. RADIATION TREATMENT [Concomitant]

REACTIONS (15)
  - ABSCESS DRAINAGE [None]
  - ANASTOMOTIC COMPLICATION [None]
  - BRONCHOALVEOLAR LAVAGE ABNORMAL [None]
  - CANDIDIASIS [None]
  - CARDIOMEGALY [None]
  - DIARRHOEA [None]
  - ENTEROBACTER INFECTION [None]
  - FISTULA [None]
  - GASTROINTESTINAL DISORDER [None]
  - GASTROINTESTINAL HAEMORRHAGE [None]
  - HEPATIC ENZYME INCREASED [None]
  - IMPAIRED HEALING [None]
  - LUNG ABSCESS [None]
  - OESOPHAGEAL DISORDER [None]
  - PNEUMONIA [None]
